FAERS Safety Report 20477472 (Version 3)
Quarter: 2022Q1

REPORT INFORMATION
  Report Type: Spontaneous
  Country: JP (occurrence: JP)
  Receive Date: 20220216
  Receipt Date: 20220325
  Transmission Date: 20220423
  Serious: No
  Sender: FDA-Public Use
  Company Number: JP-ABBVIE-22K-087-4279298-00

PATIENT
  Age: 50 Year
  Sex: Male
  Weight: 61 kg

DRUGS (5)
  1. RINVOQ [Suspect]
     Active Substance: UPADACITINIB
     Indication: Dermatitis atopic
     Route: 048
     Dates: start: 20220126, end: 20220207
  2. RINVOQ [Suspect]
     Active Substance: UPADACITINIB
     Dosage: DOSE DECREASED
     Route: 048
     Dates: start: 20220208
  3. OLMESARTAN MEDOXOMIL AND AZELNIDIPINE [Concomitant]
     Indication: Hypertension
     Route: 048
     Dates: start: 20211124
  4. RUPATADINE FUMARATE [Concomitant]
     Active Substance: RUPATADINE FUMARATE
     Indication: Dermatitis atopic
     Route: 048
     Dates: start: 20190116
  5. CHLORPHENIRAMINE MALEATE [Concomitant]
     Active Substance: CHLORPHENIRAMINE MALEATE
     Indication: Dermatitis atopic
     Dosage: PRN
     Route: 048
     Dates: start: 20160930

REACTIONS (1)
  - Blood creatine phosphokinase increased [Not Recovered/Not Resolved]

NARRATIVE: CASE EVENT DATE: 20220208
